FAERS Safety Report 20986907 (Version 1)
Quarter: 2022Q2

REPORT INFORMATION
  Report Type: Spontaneous
  Country: CA (occurrence: CA)
  Receive Date: 20220621
  Receipt Date: 20220621
  Transmission Date: 20220721
  Serious: Yes (Other)
  Sender: FDA-Public Use
  Company Number: CA-PFIZER INC-202200845373

PATIENT
  Age: 49 Year
  Sex: Female
  Weight: 63 kg

DRUGS (5)
  1. SULFASALAZINE [Suspect]
     Active Substance: SULFASALAZINE
     Indication: Arthritis
     Dosage: 1 G, 1X/DAY
     Route: 065
  2. HYDROXYCHLOROQUINE [Concomitant]
     Active Substance: HYDROXYCHLOROQUINE
     Dosage: 200 MG, 1X/DAY
     Route: 065
  3. MYCOPHENOLIC ACID [Concomitant]
     Active Substance: MYCOPHENOLIC ACID
     Dosage: 750 MG, 2X/DAY
     Route: 065
  4. SEPTRA [Concomitant]
     Active Substance: SULFAMETHOXAZOLE\TRIMETHOPRIM
     Dosage: UNK
  5. TACROLIMUS [Concomitant]
     Active Substance: TACROLIMUS
     Dosage: 5.5 MG, DAILY (1DF)
     Route: 065

REACTIONS (9)
  - Neuropathy peripheral [Unknown]
  - Peroneal nerve palsy [Unknown]
  - Off label use [Unknown]
  - Arthritis [Unknown]
  - Mononeuropathy multiplex [Recovering/Resolving]
  - Vasculitis [Unknown]
  - Limb injury [Unknown]
  - Renal disorder [Unknown]
  - Nervous system disorder [Unknown]
